FAERS Safety Report 5907882-2 (Version None)
Quarter: 2008Q4

REPORT INFORMATION
  Report Type: 
  Country: None (occurrence: None)
  Receive Date: 20081003
  Receipt Date: 20080923
  Transmission Date: 20090506
  Serious: Yes (Death, Other)
  Sender: FDA-Public Use
  Company Number: US-PFIZER INC-2008059325

PATIENT
  Sex: Male
  Weight: 83.9 kg

DRUGS (17)
  1. CHANTIX [Suspect]
     Indication: SMOKING CESSATION THERAPY
     Dates: start: 20071101, end: 20080503
  2. GABAPENTIN [Suspect]
     Indication: CONVULSION
  3. DILANTIN [Suspect]
     Indication: CONVULSION
  4. ACETYLSALICYLIC ACID SRT [Concomitant]
  5. FUROSEMIDE [Concomitant]
  6. CITALOPRAM HYDROBROMIDE [Concomitant]
  7. OMEPRAZOLE [Concomitant]
  8. POTASSIUM CHLORIDE [Concomitant]
  9. ATENOLOL [Concomitant]
  10. TAMSULOSIN HCL [Concomitant]
  11. RISPERDAL [Concomitant]
  12. SIMVASTATIN [Concomitant]
  13. FORADIL [Concomitant]
  14. PROVENTIL GENTLEHALER [Concomitant]
  15. ANTIDEPRESSANTS [Concomitant]
  16. ANTIHYPERTENSIVES [Concomitant]
  17. ALL OTHER THERAPEUTIC PRODUCTS [Concomitant]

REACTIONS (24)
  - ALCOHOL USE [None]
  - ATAXIA [None]
  - CHRONIC HEPATITIS [None]
  - CHRONIC OBSTRUCTIVE PULMONARY DISEASE [None]
  - CONSTIPATION [None]
  - CONVULSION [None]
  - DEATH [None]
  - DEPRESSION [None]
  - DRUG LEVEL INCREASED [None]
  - EATING DISORDER [None]
  - FALL [None]
  - FEELING ABNORMAL [None]
  - HYPERLIPIDAEMIA [None]
  - HYPERTENSION [None]
  - IMPAIRED HEALING [None]
  - LOSS OF CONSCIOUSNESS [None]
  - LOWER LIMB FRACTURE [None]
  - MALAISE [None]
  - MOOD SWINGS [None]
  - NAUSEA [None]
  - SOCIAL AVOIDANT BEHAVIOUR [None]
  - SURGICAL STAPLING [None]
  - VOMITING [None]
  - WEIGHT DECREASED [None]
